FAERS Safety Report 18785839 (Version 6)
Quarter: 2022Q2

REPORT INFORMATION
  Report Type: Report from Study
  Country: PL (occurrence: PL)
  Receive Date: 20210125
  Receipt Date: 20220420
  Transmission Date: 20220721
  Serious: Yes (Hospitalization, Other)
  Sender: FDA-Public Use
  Company Number: PL-BRISTOL-MYERS SQUIBB COMPANY-BMS-2021-006931

PATIENT
  Age: 54 Year
  Sex: Female
  Weight: 99 kg

DRUGS (4)
  1. CISPLATIN [Suspect]
     Active Substance: CISPLATIN
     Indication: Non-small cell lung cancer
     Dosage: MOST RECENT DOSE ADMINSTERED ON 29-MAY-2020
     Route: 042
     Dates: start: 20200327
  2. PEMETREXED DISODIUM [Suspect]
     Active Substance: PEMETREXED DISODIUM
     Indication: Non-small cell lung cancer
     Dosage: MOST RECENT DOSE ON 29-MAY-2020
     Route: 042
     Dates: start: 20200327
  3. LEVOTHYROXINE SODIUM [Concomitant]
     Active Substance: LEVOTHYROXINE SODIUM
     Indication: Prophylaxis
     Route: 048
  4. INDAPAMIDE [Concomitant]
     Active Substance: INDAPAMIDE
     Indication: Prophylaxis
     Dosage: 1.5 MILLIGRAM
     Route: 048

REACTIONS (1)
  - Enterocolitis infectious [Recovered/Resolved]

NARRATIVE: CASE EVENT DATE: 20210114
